FAERS Safety Report 23530979 (Version 1)
Quarter: 2024Q1

REPORT INFORMATION
  Report Type: Spontaneous
  Country: US (occurrence: US)
  Receive Date: 20240216
  Receipt Date: 20240216
  Transmission Date: 20240410
  Serious: No
  Sender: FDA-Public Use
  Company Number: US-JNJFOC-20240175340

PATIENT
  Age: 66 Year
  Sex: Female

DRUGS (1)
  1. WOMENS ROGAINE UNSCENTED [Suspect]
     Active Substance: MINOXIDIL
     Indication: Alopecia
     Dosage: 1 PUMP
     Route: 061
     Dates: start: 20231223

REACTIONS (3)
  - Incorrect dose administered [Unknown]
  - Product formulation issue [Unknown]
  - Product container issue [Unknown]

NARRATIVE: CASE EVENT DATE: 20231223
